FAERS Safety Report 21906145 (Version 5)
Quarter: 2023Q2

REPORT INFORMATION
  Report Type: Report from Study
  Country: EG (occurrence: EG)
  Receive Date: 20230124
  Receipt Date: 20230529
  Transmission Date: 20230721
  Serious: Yes (Hospitalization, Other)
  Sender: FDA-Public Use
  Company Number: EG-002147023-NVSC2023EG012962

PATIENT
  Age: 44 Year
  Sex: Male

DRUGS (13)
  1. ENTRESTO [Suspect]
     Active Substance: SACUBITRIL\VALSARTAN
     Indication: Cardiac failure
     Dosage: 50 MG (ONE TABLET), QD
     Route: 048
     Dates: start: 20210515, end: 202210
  2. ENTRESTO [Suspect]
     Active Substance: SACUBITRIL\VALSARTAN
     Dosage: 100 MG (ONE TABLET), QD
     Route: 048
     Dates: start: 202210
  3. ENTRESTO [Suspect]
     Active Substance: SACUBITRIL\VALSARTAN
     Dosage: 50 MG (ONE TABLET), BID
     Route: 048
     Dates: start: 20230104, end: 20230117
  4. ENTRESTO [Suspect]
     Active Substance: SACUBITRIL\VALSARTAN
     Dosage: 0.5 DOSAGE FORM, BID (HALF 100 MG)
     Route: 048
     Dates: start: 20230118
  5. ENTRESTO [Suspect]
     Active Substance: SACUBITRIL\VALSARTAN
     Dosage: 100 MG, BID (HALF TABLET TWICE DAILY)
     Route: 048
  6. AMARYL [Concomitant]
     Active Substance: GLIMEPIRIDE
     Indication: Diabetes mellitus
     Dosage: 3 MG, QD
     Route: 048
  7. FOLIC ACID [Concomitant]
     Active Substance: FOLIC ACID
     Indication: Product used for unknown indication
     Dosage: (WHEN HE WAS HOSPITALIZED)
     Route: 048
  8. ASPIRIN [Concomitant]
     Active Substance: ASPIRIN
     Indication: Anticoagulant therapy
     Dosage: 75 MG, QD
     Route: 065
     Dates: start: 2016
  9. PLAVIX [Concomitant]
     Active Substance: CLOPIDOGREL BISULFATE
     Indication: Coagulopathy
     Dosage: 75 MG, QD
     Route: 065
     Dates: start: 2016
  10. FUROSEMIDE\SPIRONOLACTONE [Concomitant]
     Active Substance: FUROSEMIDE\SPIRONOLACTONE
     Indication: Diabetes mellitus
     Dosage: 50 MG, QD
     Route: 065
     Dates: start: 20230104
  11. IVABRADINE [Concomitant]
     Active Substance: IVABRADINE
     Indication: Product used for unknown indication
     Dosage: 5 MG, QD
     Route: 065
     Dates: start: 20230104
  12. MAGNESIUM [Concomitant]
     Active Substance: MAGNESIUM
     Indication: Cardiac disorder
     Dosage: UNK, WHEN HE WAS HOSPITALIZED
     Route: 065
  13. BISOPROLOL FUMARATE [Concomitant]
     Active Substance: BISOPROLOL FUMARATE
     Indication: Product used for unknown indication
     Dosage: 2.5 MG, QD
     Route: 048
     Dates: start: 2016

REACTIONS (22)
  - Thrombosis [Recovered/Resolved]
  - Arterial occlusive disease [Not Recovered/Not Resolved]
  - Tachycardia [Recovered/Resolved]
  - Gait disturbance [Recovering/Resolving]
  - Thrombosis [Recovered/Resolved]
  - Dyspnoea [Recovered/Resolved]
  - Fatigue [Recovered/Resolved]
  - Coronary artery stenosis [Not Recovered/Not Resolved]
  - Cardiomyopathy [Not Recovered/Not Resolved]
  - Ejection fraction decreased [Not Recovered/Not Resolved]
  - Blood glucose increased [Unknown]
  - Blood triglycerides increased [Unknown]
  - Blood cholesterol increased [Unknown]
  - Echocardiogram abnormal [Unknown]
  - Electrocardiogram abnormal [Unknown]
  - Full blood count abnormal [Unknown]
  - Glucose urine present [Unknown]
  - Fatigue [Not Recovered/Not Resolved]
  - Underdose [Recovered/Resolved]
  - Product availability issue [Not Recovered/Not Resolved]
  - Wrong technique in product usage process [Not Recovered/Not Resolved]
  - Off label use [Not Recovered/Not Resolved]

NARRATIVE: CASE EVENT DATE: 20210515
